FAERS Safety Report 17429435 (Version 3)
Quarter: 2020Q1

REPORT INFORMATION
  Report Type: Spontaneous
  Country: US (occurrence: US)
  Receive Date: 20200218
  Receipt Date: 20200326
  Transmission Date: 20200409
  Serious: No
  Sender: FDA-Public Use
  Company Number: US-JNJFOC-20200219942

PATIENT
  Age: 18 Year
  Sex: Male
  Weight: 74.91 kg

DRUGS (1)
  1. TREMFYA [Suspect]
     Active Substance: GUSELKUMAB
     Indication: PSORIASIS
     Route: 058
     Dates: start: 20191211

REACTIONS (4)
  - Psoriasis [Unknown]
  - Needle issue [Unknown]
  - Therapeutic response decreased [Unknown]
  - Product dose omission [Unknown]

NARRATIVE: CASE EVENT DATE: 202002
